FAERS Safety Report 4351074-8 (Version None)
Quarter: 2004Q2

REPORT INFORMATION
  Report Type: 
  Country: None (occurrence: None)
  Receive Date: 20040427
  Receipt Date: 20040419
  Transmission Date: 20050107
  Serious: Yes (Hospitalization)
  Sender: FDA-Public Use
  Company Number: K200400591

PATIENT
  Sex: Female

DRUGS (2)
  1. ALTACE [Suspect]
     Dosage: 2.5 MG, QD; ORAL (SEE IMAGE)
     Route: 048
     Dates: start: 20040410, end: 20040401
  2. ALTACE [Suspect]
     Dosage: 2.5 MG, QD; ORAL (SEE IMAGE)
     Route: 048
     Dates: start: 20040401

REACTIONS (3)
  - CIRCULATORY COLLAPSE [None]
  - DRY THROAT [None]
  - PALPITATIONS [None]
